APPROVED DRUG PRODUCT: TRIAMCINOLONE ACETONIDE
Active Ingredient: TRIAMCINOLONE ACETONIDE
Strength: 0.1%
Dosage Form/Route: PASTE;DENTAL
Application: A214582 | Product #001 | TE Code: AT
Applicant: QUAGEN PHARMACEUTICALS LLC
Approved: Dec 9, 2022 | RLD: No | RS: No | Type: RX